FAERS Safety Report 5527991-X (Version None)
Quarter: 2007Q4

REPORT INFORMATION
  Report Type: 
  Country: None (occurrence: None)
  Receive Date: 20071123
  Receipt Date: 20071114
  Transmission Date: 20080405
  Serious: Yes (Hospitalization)
  Sender: FDA-Public Use
  Company Number: 100#08#2007-04576

PATIENT
  Age: 74 Year
  Sex: Male

DRUGS (5)
  1. CARBAMAZEPINE [Suspect]
     Indication: DRUG USE FOR UNKNOWN INDICATION
  2. EPROSARTAN (EPROSARTAN) (EPROSARTAN) [Concomitant]
  3. PRAVASTATIN [Concomitant]
  4. ZOLPIDEM (ZOLPIDEM) (ZOLPIDEM, ) [Concomitant]
  5. TERAZOSIN (TERAZOSIN) (TERAZOSIN) [Concomitant]

REACTIONS (18)
  - ATRIAL FIBRILLATION [None]
  - CELL DEATH [None]
  - CHOLESTASIS [None]
  - CONFUSIONAL STATE [None]
  - CRYPTOGENIC ORGANISING PNEUMONIA [None]
  - CYTOMEGALOVIRUS ANTIGEN POSITIVE [None]
  - EOSINOPHILIA [None]
  - HALLUCINATION, VISUAL [None]
  - HEPATOMEGALY [None]
  - HYPERGAMMAGLOBULINAEMIA [None]
  - HYPOVENTILATION [None]
  - LEUKOCYTOSIS [None]
  - PLEURISY [None]
  - RESPIRATORY FAILURE [None]
  - SKIN LESION [None]
  - TACHYCARDIA [None]
  - TACHYPNOEA [None]
  - VARICELLA ZOSTER VIRUS SEROLOGY POSITIVE [None]
